FAERS Safety Report 18247866 (Version 2)
Quarter: 2021Q2

REPORT INFORMATION
  Report Type: Report from Study
  Country: CA (occurrence: CA)
  Receive Date: 20200909
  Receipt Date: 20210608
  Transmission Date: 20210717
  Serious: Yes (Other)
  Sender: FDA-Public Use
  Company Number: CA-JNJFOC-20190817707

PATIENT
  Age: 12 Year
  Sex: Female

DRUGS (1)
  1. REMICADE [Suspect]
     Active Substance: INFLIXIMAB
     Indication: CROHN^S DISEASE
     Route: 042
     Dates: start: 20170117

REACTIONS (4)
  - Off label use [Unknown]
  - Sports injury [Unknown]
  - Product use issue [Unknown]
  - Ligament injury [Unknown]

NARRATIVE: CASE EVENT DATE: 20170117
